FAERS Safety Report 24292570 (Version 1)
Quarter: 2024Q3

REPORT INFORMATION
  Report Type: Spontaneous
  Country: US (occurrence: None)
  Receive Date: 20240905
  Receipt Date: 20240905
  Transmission Date: 20241016
  Serious: No
  Sender: Public
  Company Number: None

PATIENT
  Age: 21 Year
  Sex: Male
  Weight: 55.8 kg

DRUGS (1)
  1. CEPACOL ANTIBACTERIAL MULTIPROTECTION MOUTHWASH [Suspect]
     Active Substance: CETYLPYRIDINIUM CHLORIDE
     Indication: Dental disorder prophylaxis
     Dosage: FREQUENCY : TWICE A DAY;?
     Route: 048
     Dates: start: 20240903, end: 20240903

REACTIONS (3)
  - Ageusia [None]
  - Taste disorder [None]
  - Stomatitis [None]

NARRATIVE: CASE EVENT DATE: 20240903
